FAERS Safety Report 21956405 (Version 2)
Quarter: 2023Q1

REPORT INFORMATION
  Report Type: Spontaneous
  Country: FR (occurrence: FR)
  Receive Date: 20230206
  Receipt Date: 20230307
  Transmission Date: 20230417
  Serious: Yes (Hospitalization, Other)
  Sender: FDA-Public Use
  Company Number: FR-AUROBINDO-AUR-APL-2023-004557

PATIENT
  Age: 45 Year
  Sex: Male
  Weight: 88 kg

DRUGS (9)
  1. MIANSERIN [Suspect]
     Active Substance: MIANSERIN
     Indication: Anxiety
     Dosage: 1 DOSAGE FORM, ONCE A DAY
     Route: 048
     Dates: start: 20210808, end: 20211001
  2. PAROXETINE [Suspect]
     Active Substance: PAROXETINE
     Indication: Anxiety
     Dosage: 1 DOSAGE FORM, ONCE A DAY
     Route: 048
     Dates: start: 20210708, end: 20210807
  3. BRINTELLIX [Suspect]
     Active Substance: VORTIOXETINE HYDROBROMIDE
     Indication: Anxiety
     Dosage: 1 DOSAGE FORM, ONCE A DAY
     Route: 048
     Dates: start: 20211001, end: 20211011
  4. MIRTAZAPINE [Suspect]
     Active Substance: MIRTAZAPINE
     Indication: Anxiety
     Dosage: 1 DOSAGE FORM, ONCE A DAY
     Route: 048
     Dates: start: 20211011, end: 20220401
  5. ALPRAZOLAM [Concomitant]
     Active Substance: ALPRAZOLAM
     Indication: Depression
     Dosage: 0.25 MILLIGRAM, 3 TIMES A DAY
     Route: 048
     Dates: start: 20211024
  6. ANAFRANIL [Concomitant]
     Active Substance: CLOMIPRAMINE HYDROCHLORIDE
     Indication: Depression
     Dosage: 1 DOSAGE FORM
     Route: 048
     Dates: start: 202204
  7. DEPAKOTE [Concomitant]
     Active Substance: DIVALPROEX SODIUM
     Indication: Affective disorder
     Dosage: UNK
     Route: 065
     Dates: start: 20211001
  8. LORMETAZEPAM [Concomitant]
     Active Substance: LORMETAZEPAM
     Indication: Depression
     Dosage: 1 MILLIGRAM, ONCE A DAY
     Route: 048
     Dates: start: 20211024
  9. QUETIAPINE FUMARATE [Concomitant]
     Active Substance: QUETIAPINE FUMARATE
     Indication: Depression
     Dosage: 200 MILLIGRAM, ONCE A DAY
     Route: 048
     Dates: start: 20211024

REACTIONS (2)
  - Akathisia [Recovered/Resolved]
  - Major depression [Recovered/Resolved]

NARRATIVE: CASE EVENT DATE: 20210710
